FAERS Safety Report 20001626 (Version 8)
Quarter: 2023Q1

REPORT INFORMATION
  Report Type: Spontaneous
  Country: US (occurrence: US)
  Receive Date: 20211027
  Receipt Date: 20230106
  Transmission Date: 20230418
  Serious: No
  Sender: FDA-Public Use
  Company Number: US-SA-SAC20211020000925

PATIENT
  Age: 13 Year
  Sex: Female

DRUGS (2)
  1. DUPIXENT [Suspect]
     Active Substance: DUPILUMAB
     Indication: Dermatitis atopic
     Dosage: 400 MG, 1X
     Route: 058
  2. DUPIXENT [Suspect]
     Active Substance: DUPILUMAB
     Indication: Dermatitis allergic
     Dosage: 200 MG, QOW
     Route: 058
     Dates: start: 20211006

REACTIONS (16)
  - Eye swelling [Recovered/Resolved]
  - Eyelid margin crusting [Not Recovered/Not Resolved]
  - Burning sensation [Unknown]
  - Irritability [Unknown]
  - Injection site mass [Unknown]
  - Alopecia [Unknown]
  - Madarosis [Not Recovered/Not Resolved]
  - Lip blister [Unknown]
  - Ocular hyperaemia [Recovered/Resolved]
  - Eye irritation [Unknown]
  - Rash [Not Recovered/Not Resolved]
  - Rash erythematous [Not Recovered/Not Resolved]
  - Skin exfoliation [Not Recovered/Not Resolved]
  - Dermatitis atopic [Unknown]
  - Product dose omission in error [Unknown]
  - Drug ineffective [Unknown]

NARRATIVE: CASE EVENT DATE: 20211204
